FAERS Safety Report 15209235 (Version 2)
Quarter: 2018Q3

REPORT INFORMATION
  Report Type: Spontaneous
  Country: JP (occurrence: JP)
  Receive Date: 20180727
  Receipt Date: 20180727
  Transmission Date: 20181010
  Serious: Yes (Other)
  Sender: FDA-Public Use
  Company Number: JP-BAUSCH-BL-2018-020268

PATIENT
  Age: 84 Year
  Sex: Male

DRUGS (3)
  1. FLUOROURACIL. [Suspect]
     Active Substance: FLUOROURACIL
     Indication: COLON CANCER RECURRENT
     Dosage: CYCLICALLY
     Route: 065
  2. FOLINIC ACID [Concomitant]
     Active Substance: LEUCOVORIN
     Indication: COLON CANCER RECURRENT
  3. TS?1 [Concomitant]
     Active Substance: GIMERACIL\OTERACIL\TEGAFUR
     Indication: COLON CANCER RECURRENT

REACTIONS (4)
  - Encephalopathy [Recovered/Resolved]
  - Hyperammonaemia [Recovered/Resolved]
  - Renal impairment [Unknown]
  - Disease progression [Unknown]
